FAERS Safety Report 7276658-9 (Version None)
Quarter: 2011Q1

REPORT INFORMATION
  Report Type: 
  Country: None (occurrence: None)
  Receive Date: 20110204
  Receipt Date: 20110124
  Transmission Date: 20110831
  Serious: Yes (Hospitalization)
  Sender: FDA-Public Use
  Company Number: JP-GILEAD-E2B_00001027

PATIENT
  Sex: Male
  Weight: 54 kg

DRUGS (11)
  1. AMBRISENTAN [Suspect]
     Indication: PULMONARY ARTERIAL HYPERTENSION
     Dosage: 5MG PER DAY
     Route: 048
     Dates: start: 20101027, end: 20101130
  2. BENET [Concomitant]
     Indication: OSTEOPOROSIS PROPHYLAXIS
     Dosage: 2.5MG PER DAY
     Route: 048
  3. PIRFENIDONE [Concomitant]
     Indication: IDIOPATHIC PULMONARY FIBROSIS
     Dosage: 800MG PER DAY
     Route: 048
  4. BAKTAR [Concomitant]
     Indication: ANTIFUNGAL PROPHYLAXIS
     Dosage: 1IUAX PER DAY
     Route: 048
  5. PARIET [Concomitant]
     Indication: PROPHYLAXIS
     Dosage: 10MG PER DAY
     Route: 048
  6. PROGRAF [Concomitant]
     Indication: IDIOPATHIC PULMONARY FIBROSIS
     Dosage: 1MG PER DAY
     Route: 048
  7. ROCORNAL [Concomitant]
     Indication: ANGINA PECTORIS
     Dosage: 200MG PER DAY
     Route: 048
  8. PREDNISOLIN [Concomitant]
     Indication: IDIOPATHIC PULMONARY FIBROSIS
     Dosage: 5MG PER DAY
     Route: 048
  9. REVATIO [Concomitant]
     Indication: PULMONARY ARTERIAL HYPERTENSION
     Dosage: 60MG PER DAY
     Route: 048
  10. EPADEL S [Concomitant]
     Indication: ANGINA PECTORIS
     Dosage: 1800MG PER DAY
     Route: 048
  11. KETAS [Concomitant]
     Indication: IDIOPATHIC PULMONARY FIBROSIS
     Dosage: 20MG PER DAY
     Route: 048

REACTIONS (1)
  - RESPIRATORY FAILURE [None]
